FAERS Safety Report 7069792-X (Version None)
Quarter: 2010Q4

REPORT INFORMATION
  Report Type: 
  Country: None (occurrence: None)
  Receive Date: 20101028
  Receipt Date: 20100630
  Transmission Date: 20110411
  Serious: No
  Sender: FDA-Public Use
  Company Number: US-WYE-H15626410

PATIENT
  Age: 62 Year
  Sex: Male
  Weight: 80.81 kg

DRUGS (1)
  1. ADVIL [Suspect]
     Indication: PAIN
     Route: 048
     Dates: start: 20100501

REACTIONS (2)
  - HERPES ZOSTER [None]
  - URTICARIA [None]
